FAERS Safety Report 8529418-2 (Version None)
Quarter: 2012Q3

REPORT INFORMATION
  Report Type: 
  Country: None (occurrence: None)
  Receive Date: 20120723
  Receipt Date: 20120713
  Transmission Date: 20120928
  Serious: Yes (Hospitalization)
  Sender: FDA-Public Use
  Company Number: JP-JNJFOC-20120707820

PATIENT
  Sex: Male
  Weight: 58 kg

DRUGS (6)
  1. SIMPONI [Suspect]
     Indication: RHEUMATOID ARTHRITIS
     Route: 058
     Dates: start: 20111109
  2. ASPIRIN [Concomitant]
     Indication: RHEUMATOID ARTHRITIS
     Route: 065
  3. PREDNISOLONE [Concomitant]
     Indication: RHEUMATOID ARTHRITIS
     Route: 048
     Dates: start: 20111031, end: 20111106
  4. SIMPONI [Suspect]
     Route: 058
     Dates: start: 20111005
  5. PREDNISOLONE [Concomitant]
     Route: 048
     Dates: start: 20110907, end: 20110930
  6. BETAMETHASONE [Concomitant]
     Indication: RHEUMATOID ARTHRITIS
     Route: 048
     Dates: start: 20111107

REACTIONS (1)
  - TUBERCULOSIS [None]
